FAERS Safety Report 25619377 (Version 1)
Quarter: 2025Q3

REPORT INFORMATION
  Report Type: Spontaneous
  Country: EU (occurrence: EU)
  Receive Date: 20250729
  Receipt Date: 20250729
  Transmission Date: 20251020
  Serious: Yes (Hospitalization)
  Sender: MYLAN
  Company Number: None

PATIENT
  Age: 65 Year
  Sex: Male
  Weight: 53.9 kg

DRUGS (16)
  1. MIRTAZAPINE [Interacting]
     Active Substance: MIRTAZAPINE
     Indication: Adjustment disorder with depressed mood
     Dosage: 15 MILLIGRAM, QD (EVERYDAY)
     Dates: start: 20250508, end: 20250528
  2. MIRTAZAPINE [Interacting]
     Active Substance: MIRTAZAPINE
     Dosage: 15 MILLIGRAM, QD (EVERYDAY)
     Route: 048
     Dates: start: 20250508, end: 20250528
  3. MIRTAZAPINE [Interacting]
     Active Substance: MIRTAZAPINE
     Dosage: 15 MILLIGRAM, QD (EVERYDAY)
     Route: 048
     Dates: start: 20250508, end: 20250528
  4. MIRTAZAPINE [Interacting]
     Active Substance: MIRTAZAPINE
     Dosage: 15 MILLIGRAM, QD (EVERYDAY)
     Dates: start: 20250508, end: 20250528
  5. ESCITALOPRAM [Interacting]
     Active Substance: ESCITALOPRAM OXALATE
     Indication: Adjustment disorder with depressed mood
     Dosage: 10 MILLIGRAM, QD (24 HOURS, EVERYDAY)
     Dates: start: 20250308, end: 20250528
  6. ESCITALOPRAM [Interacting]
     Active Substance: ESCITALOPRAM OXALATE
     Dosage: 10 MILLIGRAM, QD (24 HOURS, EVERYDAY)
     Route: 048
     Dates: start: 20250308, end: 20250528
  7. ESCITALOPRAM [Interacting]
     Active Substance: ESCITALOPRAM OXALATE
     Dosage: 10 MILLIGRAM, QD (24 HOURS, EVERYDAY)
     Route: 048
     Dates: start: 20250308, end: 20250528
  8. ESCITALOPRAM [Interacting]
     Active Substance: ESCITALOPRAM OXALATE
     Dosage: 10 MILLIGRAM, QD (24 HOURS, EVERYDAY)
     Dates: start: 20250308, end: 20250528
  9. OMEPRAZOLE [Concomitant]
     Active Substance: OMEPRAZOLE
     Indication: Prophylaxis
     Dosage: 20 MILLIGRAM, QD (24 HOURS, EVERYDAY)
     Dates: start: 20240513, end: 20250528
  10. OMEPRAZOLE [Concomitant]
     Active Substance: OMEPRAZOLE
     Dosage: 20 MILLIGRAM, QD (24 HOURS, EVERYDAY)
     Route: 048
     Dates: start: 20240513, end: 20250528
  11. OMEPRAZOLE [Concomitant]
     Active Substance: OMEPRAZOLE
     Dosage: 20 MILLIGRAM, QD (24 HOURS, EVERYDAY)
     Route: 048
     Dates: start: 20240513, end: 20250528
  12. OMEPRAZOLE [Concomitant]
     Active Substance: OMEPRAZOLE
     Dosage: 20 MILLIGRAM, QD (24 HOURS, EVERYDAY)
     Dates: start: 20240513, end: 20250528
  13. METAMIZOL [Concomitant]
     Active Substance: METAMIZOLE SODIUM
     Dosage: 575 MILLIGRAM, Q8H (EVERY 8 HOURS)
     Dates: start: 20250513, end: 20250523
  14. METAMIZOL [Concomitant]
     Active Substance: METAMIZOLE SODIUM
     Dosage: 575 MILLIGRAM, Q8H (EVERY 8 HOURS)
     Route: 048
     Dates: start: 20250513, end: 20250523
  15. METAMIZOL [Concomitant]
     Active Substance: METAMIZOLE SODIUM
     Dosage: 575 MILLIGRAM, Q8H (EVERY 8 HOURS)
     Route: 048
     Dates: start: 20250513, end: 20250523
  16. METAMIZOL [Concomitant]
     Active Substance: METAMIZOLE SODIUM
     Dosage: 575 MILLIGRAM, Q8H (EVERY 8 HOURS)
     Dates: start: 20250513, end: 20250523

REACTIONS (2)
  - Inappropriate antidiuretic hormone secretion [Recovering/Resolving]
  - Altered state of consciousness [Recovered/Resolved]

NARRATIVE: CASE EVENT DATE: 20250528
